FAERS Safety Report 6654347-9 (Version None)
Quarter: 2010Q1

REPORT INFORMATION
  Report Type: 
  Country: None (occurrence: None)
  Receive Date: 20100326
  Receipt Date: 20100318
  Transmission Date: 20100710
  Serious: Yes (Other)
  Sender: FDA-Public Use
  Company Number: US-AMGEN-QUU400514

PATIENT
  Sex: Male

DRUGS (2)
  1. ENBREL [Suspect]
     Indication: ANKYLOSING SPONDYLITIS
     Route: 058
     Dates: start: 20060401
  2. SULFADIAZINE [Concomitant]
     Dates: start: 20040101

REACTIONS (5)
  - DIABETES MELLITUS [None]
  - DRY MOUTH [None]
  - DYSPHONIA [None]
  - PRODUCTIVE COUGH [None]
  - URINE KETONE BODY PRESENT [None]
